FAERS Safety Report 5997292-4 (Version None)
Quarter: 2008Q4

REPORT INFORMATION
  Report Type: 
  Country: None (occurrence: None)
  Receive Date: 20081212
  Receipt Date: 20081106
  Transmission Date: 20090506
  Serious: No
  Sender: FDA-Public Use
  Company Number: US-ABBOTT-08P-163-0486803-00

PATIENT
  Sex: Female
  Weight: 44.492 kg

DRUGS (1)
  1. HUMIRA [Suspect]
     Indication: RHEUMATOID ARTHRITIS
     Route: 058
     Dates: start: 20081001, end: 20081001

REACTIONS (8)
  - ASTHENIA [None]
  - DIZZINESS [None]
  - INFLUENZA [None]
  - NAUSEA [None]
  - PRURITUS [None]
  - RASH [None]
  - RETCHING [None]
  - VOMITING [None]
